FAERS Safety Report 20155811 (Version 1)
Quarter: 2021Q4

REPORT INFORMATION
  Report Type: Spontaneous
  Country: US (occurrence: US)
  Receive Date: 20211207
  Receipt Date: 20211207
  Transmission Date: 20220303
  Serious: No
  Sender: FDA-Public Use
  Company Number: US-BEH-2021139041

PATIENT
  Age: 66 Year
  Sex: Male

DRUGS (6)
  1. HIZENTRA [Suspect]
     Active Substance: HUMAN IMMUNOGLOBULIN G
     Indication: Chronic inflammatory demyelinating polyradiculoneuropathy
     Dosage: 17 GRAM, BIW
     Route: 058
  2. ISENTRESS [Concomitant]
     Active Substance: RALTEGRAVIR POTASSIUM
  3. FOLATE SODIUM [Concomitant]
     Active Substance: FOLATE SODIUM
  4. GABAPENTIN [Concomitant]
     Active Substance: GABAPENTIN
  5. LOVASTATIN [Concomitant]
     Active Substance: LOVASTATIN
  6. ZETIA [Concomitant]
     Active Substance: EZETIMIBE

REACTIONS (2)
  - Fatigue [Not Recovered/Not Resolved]
  - Somnolence [Not Recovered/Not Resolved]

NARRATIVE: CASE EVENT DATE: 20211202
